FAERS Safety Report 8560484-4 (Version None)
Quarter: 2012Q3

REPORT INFORMATION
  Report Type: 
  Country: None (occurrence: None)
  Receive Date: 20120802
  Receipt Date: 20120724
  Transmission Date: 20120928
  Serious: Yes (Other)
  Sender: FDA-Public Use
  Company Number: FR-ASTRAZENECA-2012SE39196

PATIENT
  Age: 644 Month
  Sex: Female

DRUGS (6)
  1. SEROQUEL [Suspect]
     Indication: DEPRESSION
     Route: 048
     Dates: start: 20120209, end: 20120511
  2. ZOLPIDEM TARTRATE [Concomitant]
     Indication: INSOMNIA
     Route: 048
     Dates: start: 20110627
  3. XANAX [Concomitant]
     Indication: ANXIETY
     Route: 048
     Dates: start: 20110627
  4. SEROQUEL [Suspect]
     Indication: ANXIETY
     Route: 048
     Dates: start: 20120209, end: 20120511
  5. CITALOPRAM HYDROBROMIDE [Concomitant]
     Indication: DEPRESSION
     Route: 048
     Dates: start: 20110627
  6. ANTIHYPERTENSIVE MEDICATION [Concomitant]

REACTIONS (6)
  - FATIGUE [None]
  - HEPATIC STEATOSIS [None]
  - NAUSEA [None]
  - DIZZINESS [None]
  - SERUM FERRITIN INCREASED [None]
  - TRANSAMINASES INCREASED [None]
